FAERS Safety Report 19885688 (Version 6)
Quarter: 2022Q4

REPORT INFORMATION
  Report Type: Report from Study
  Country: US (occurrence: None)
  Receive Date: 20210927
  Receipt Date: 20221215
  Transmission Date: 20230112
  Serious: Yes (Death, Life-Threatening, Hospitalization)
  Sender: FDA-Public Use
  Company Number: US-ROCHE-2919271

PATIENT
  Age: 61 Year
  Sex: Male
  Weight: 84.4 kg

DRUGS (9)
  1. TIRAGOLUMAB [Suspect]
     Active Substance: TIRAGOLUMAB
     Indication: Metastatic gastric cancer
     Dosage: DATE OF MOST RECENT DOSE OF TIRAGOLUMAB  PRIOR TO ONSET OF SAE: 02/AUG/2021 (840 MG) 12.45 PM ENDED
     Route: 042
     Dates: start: 20210802
  2. ATEZOLIZUMAB [Suspect]
     Active Substance: ATEZOLIZUMAB
     Indication: Metastatic gastric cancer
     Dosage: ON 29/JUL/2021 HE STARTED MOST RECENT DOSE OF ATEZOLIZUMAB OF 1680 MG PRIOR TO AE AND ENDED ON THE S
     Route: 041
     Dates: start: 20210802
  3. PANTOPRAZOLE [Concomitant]
     Active Substance: PANTOPRAZOLE
     Indication: Gastrooesophageal reflux disease
     Route: 048
     Dates: start: 20190315, end: 20211006
  4. ENOXAPARIN [Concomitant]
     Active Substance: ENOXAPARIN
     Indication: Deep vein thrombosis
     Route: 058
     Dates: start: 20210323
  5. ONDANSETRON [Concomitant]
     Active Substance: ONDANSETRON
     Indication: Nausea
     Route: 048
     Dates: start: 20201210
  6. ONDANSETRON [Concomitant]
     Active Substance: ONDANSETRON
     Indication: Vomiting
  7. ASPIRIN [Concomitant]
     Active Substance: ASPIRIN
     Indication: Prophylaxis
     Route: 048
     Dates: start: 20161010
  8. MIRALAX [Concomitant]
     Active Substance: POLYETHYLENE GLYCOL 3350
     Indication: Constipation
     Route: 048
     Dates: start: 20210803
  9. METOCLOPRAMIDE [Concomitant]
     Active Substance: METOCLOPRAMIDE
     Indication: Nausea
     Route: 048
     Dates: start: 20210828

REACTIONS (2)
  - Obstruction gastric [Recovered/Resolved]
  - Malignant neoplasm progression [Fatal]

NARRATIVE: CASE EVENT DATE: 20210913
